FAERS Safety Report 10195361 (Version 3)
Quarter: 2015Q2

REPORT INFORMATION
  Report Type: Report from Study
  Country: JP (occurrence: JP)
  Receive Date: 20140526
  Receipt Date: 20150626
  Transmission Date: 20150821
  Serious: Yes (Life-Threatening, Hospitalization)
  Sender: FDA-Public Use
  Company Number: JP-UCBSA-121800

PATIENT
  Age: 64 Year
  Sex: Female
  Weight: 64.4 kg

DRUGS (11)
  1. RIMATIL [Concomitant]
     Active Substance: BUCILLAMINE
     Route: 048
  2. CERTOLIZUMAB PEGOL RA [Suspect]
     Active Substance: CERTOLIZUMAB PEGOL
     Dosage: 200 MG, EV 2 WEEKS(QOW)
     Route: 058
     Dates: start: 20131106, end: 20131120
  3. MICAMLO [Concomitant]
     Active Substance: AMLODIPINE BESYLATE\TELMISARTAN
     Dosage: UNK DF, UNK
     Route: 048
  4. CERTOLIZUMAB PEGOL RA [Suspect]
     Active Substance: CERTOLIZUMAB PEGOL
     Indication: RHEUMATOID ARTHRITIS
     Dosage: 400 MG, EV 2 WEEKS(QOW)
     Route: 058
     Dates: start: 20130925, end: 20131023
  5. AZULFIDINE [Concomitant]
     Active Substance: SULFASALAZINE
     Route: 048
     Dates: start: 20131220
  6. AZULFIDINE [Concomitant]
     Active Substance: SULFASALAZINE
     Route: 048
     Dates: end: 20131219
  7. SEIBULE [Concomitant]
     Active Substance: MIGLITOL
     Dosage: UNK
     Route: 048
  8. LEVEMIR [Concomitant]
     Active Substance: INSULIN DETEMIR
     Dosage: UNK
     Route: 058
  9. HUMALOG [Concomitant]
     Active Substance: INSULIN LISPRO
     Dosage: UNK
     Route: 058
  10. CELECOX [Concomitant]
     Active Substance: CELECOXIB
     Route: 048
  11. PREDONINE [Suspect]
     Active Substance: PREDNISOLONE\PREDNISOLONE ACETATE\PREDNISOLONE SODIUM SUCCINATE
     Indication: RHEUMATOID ARTHRITIS
     Dosage: UNKNOWN DOSE
     Route: 048
     Dates: end: 20131212

REACTIONS (1)
  - Pyelonephritis [Recovering/Resolving]

NARRATIVE: CASE EVENT DATE: 20131130
